FAERS Safety Report 26061025 (Version 1)
Quarter: 2025Q4

REPORT INFORMATION
  Report Type: Spontaneous
  Country: CA (occurrence: CA)
  Receive Date: 20251118
  Receipt Date: 20251118
  Transmission Date: 20260117
  Serious: Yes (Other)
  Sender: FRESENIUS KABI
  Company Number: CA-FreseniusKabi-FK202515408

PATIENT

DRUGS (1)
  1. PANTOPRAZOLE [Suspect]
     Active Substance: PANTOPRAZOLE
     Indication: Product used for unknown indication
     Dosage: FOA: NOT SPECIFIED
     Route: 065

REACTIONS (7)
  - Abdominal distension [Unknown]
  - Allergic reaction to excipient [Unknown]
  - Chest pain [Unknown]
  - Inappropriate schedule of product administration [Unknown]
  - Musculoskeletal discomfort [Unknown]
  - Palpitations [Unknown]
  - Weight increased [Unknown]
